FAERS Safety Report 17567965 (Version 2)
Quarter: 2020Q3

REPORT INFORMATION
  Report Type: Spontaneous
  Country: US (occurrence: US)
  Receive Date: 20200320
  Receipt Date: 20200825
  Transmission Date: 20201102
  Serious: Yes (Other)
  Sender: FDA-Public Use
  Company Number: US-TEVA-2020-US-1207567

PATIENT
  Age: 61 Year
  Sex: Male

DRUGS (12)
  1. SYNRIBO [Suspect]
     Active Substance: OMACETAXINE MEPESUCCINATE
     Indication: PHILADELPHIA CHROMOSOME POSITIVE
     Dosage: 2.8MG/0.80ML SUBQ, BID FOR 7 DAYS OF 28 DAY CYCLE
     Route: 058
     Dates: start: 20180622
  2. ZOFRAN [Concomitant]
     Active Substance: ONDANSETRON HYDROCHLORIDE
  3. SYNRIBO [Suspect]
     Active Substance: OMACETAXINE MEPESUCCINATE
     Indication: REMISSION NOT ACHIEVED
  4. METFORMIN HCL [Concomitant]
     Active Substance: METFORMIN HYDROCHLORIDE
  5. ALLEGRA [Concomitant]
     Active Substance: FEXOFENADINE HYDROCHLORIDE
  6. SYNRIBO [Suspect]
     Active Substance: OMACETAXINE MEPESUCCINATE
     Indication: CHRONIC MYELOID LEUKAEMIA
     Dosage: 2.8MG/0.80ML SUBQ, BID FOR 7 DAYS OF 28 DAY CYCLE
     Route: 058
     Dates: start: 20180621
  7. TYLENOL [Concomitant]
     Active Substance: ACETAMINOPHEN
  8. ALLOPURINOL. [Concomitant]
     Active Substance: ALLOPURINOL
  9. LIPITOR [Concomitant]
     Active Substance: ATORVASTATIN CALCIUM
  10. BIOTIN THC [Concomitant]
  11. ICLUSIG [Concomitant]
     Active Substance: PONATINIB
  12. ASPIRIN 81 LOW DOSE [Concomitant]

REACTIONS (2)
  - Diabetes mellitus [Unknown]
  - Nausea [Unknown]
